FAERS Safety Report 17117450 (Version 3)
Quarter: 2020Q1

REPORT INFORMATION
  Report Type: Spontaneous
  Country: US (occurrence: US)
  Receive Date: 20191205
  Receipt Date: 20200203
  Transmission Date: 20200409
  Serious: No
  Sender: FDA-Public Use
  Company Number: US-009507513-1912USA000831

PATIENT
  Age: 69 Year
  Sex: Male

DRUGS (3)
  1. ASMANEX [Suspect]
     Active Substance: MOMETASONE FUROATE
     Dosage: TWO PUFFS IN THE MORNING
     Dates: start: 20191031, end: 20191129
  2. ASMANEX [Suspect]
     Active Substance: MOMETASONE FUROATE
     Dosage: TWO PUFFS IN THE MORNING
     Dates: start: 20191130
  3. ASMANEX [Suspect]
     Active Substance: MOMETASONE FUROATE
     Dosage: TWO PUFFS IN THE MORNING

REACTIONS (3)
  - Inappropriate schedule of product administration [Unknown]
  - Poor quality device used [Unknown]
  - Product quality issue [Unknown]

NARRATIVE: CASE EVENT DATE: 20191031
